FAERS Safety Report 5208828-5 (Version None)
Quarter: 2006Q4

REPORT INFORMATION
  Report Type: 
  Country: None (occurrence: None)
  Receive Date: 20061101
  Receipt Date: 20060707
  Transmission Date: 20070319
  Serious: No
  Sender: FDA-Public Use
  Company Number: 2006PV017205

PATIENT
  Age: 68 Year
  Sex: Male

DRUGS (3)
  1. SYMLIN [Suspect]
     Indication: DIABETES MELLITUS NON-INSULIN-DEPENDENT
     Dosage: 30 MCG; TID; SC
     Route: 058
     Dates: start: 20060630, end: 20060709
  2. LANTUS [Concomitant]
  3. BYETTA [Concomitant]

REACTIONS (1)
  - INJECTION SITE PAIN [None]
